FAERS Safety Report 25070957 (Version 1)
Quarter: 2025Q1

REPORT INFORMATION
  Report Type: Spontaneous
  Country: DE (occurrence: DE)
  Receive Date: 20250312
  Receipt Date: 20250312
  Transmission Date: 20250408
  Serious: Yes (Other)
  Sender: UCB
  Company Number: DE-UCBSA-2025014201

PATIENT
  Age: 50 Year
  Sex: Female

DRUGS (5)
  1. LACOSAMIDE [Suspect]
     Active Substance: LACOSAMIDE
     Indication: Product used for unknown indication
  2. LACOSAMIDE [Suspect]
     Active Substance: LACOSAMIDE
     Dates: start: 2016
  3. LACOSAMIDE [Suspect]
     Active Substance: LACOSAMIDE
     Dosage: 250 MILLIGRAM, 2X/DAY (BID)
  4. LEVETIRACETAM [Suspect]
     Active Substance: LEVETIRACETAM
     Indication: Product used for unknown indication
  5. LEVETIRACETAM [Suspect]
     Active Substance: LEVETIRACETAM
     Dates: start: 2013

REACTIONS (4)
  - Epilepsy [Unknown]
  - Road traffic accident [Unknown]
  - Off label use [Unknown]
  - Drug ineffective [Unknown]

NARRATIVE: CASE EVENT DATE: 20210107
